FAERS Safety Report 6081365-4 (Version None)
Quarter: 2009Q1

REPORT INFORMATION
  Report Type: 
  Country: None (occurrence: None)
  Receive Date: 20090218
  Receipt Date: 20090209
  Transmission Date: 20090719
  Serious: No
  Sender: FDA-Public Use
  Company Number: JP-JNJFOC-20090104799

PATIENT
  Age: 18 Year
  Sex: Female

DRUGS (2)
  1. RISPERDAL [Suspect]
     Indication: SCHIZOPHRENIA
     Route: 048
  2. AKINETON [Concomitant]
     Route: 048

REACTIONS (1)
  - WEIGHT INCREASED [None]
